FAERS Safety Report 10440824 (Version 1)
Quarter: 2014Q3

REPORT INFORMATION
  Report Type: Spontaneous
  Country: US (occurrence: None)
  Receive Date: 20140905
  Receipt Date: 20140905
  Transmission Date: 20150326
  Serious: Yes (Hospitalization, Disabling, Other)
  Sender: FDA-Public Use
  Company Number: None

PATIENT
  Age: 51 Year
  Sex: Female
  Weight: 62.14 kg

DRUGS (1)
  1. LYRICA [Suspect]
     Active Substance: PREGABALIN
     Indication: PAIN IN EXTREMITY
     Route: 048
     Dates: start: 20101223, end: 20121206

REACTIONS (12)
  - Nerve injury [None]
  - Activities of daily living impaired [None]
  - Economic problem [None]
  - Impaired driving ability [None]
  - Drug withdrawal syndrome [None]
  - Headache [None]
  - Convulsion [None]
  - Tremor [None]
  - Feeling abnormal [None]
  - Syncope [None]
  - Dizziness [None]
  - Muscle twitching [None]

NARRATIVE: CASE EVENT DATE: 20130815
